FAERS Safety Report 13569660 (Version 2)
Quarter: 2017Q2

REPORT INFORMATION
  Report Type: Spontaneous
  Country: US (occurrence: US)
  Receive Date: 20170522
  Receipt Date: 20170531
  Transmission Date: 20170830
  Serious: No
  Sender: FDA-Public Use
  Company Number: US-INGENUS PHARMACEUTICALS NJ, LLC-ING201705-000269

PATIENT
  Age: 67 Year
  Sex: Male

DRUGS (4)
  1. CARISOPRODOL AND ASPIRIN [Suspect]
     Active Substance: ASPIRIN\CARISOPRODOL
     Indication: ANTIPLATELET THERAPY
  2. HEPARIN [Suspect]
     Active Substance: HEPARIN SODIUM
  3. HEPARIN [Suspect]
     Active Substance: HEPARIN SODIUM
  4. PLAVIX [Suspect]
     Active Substance: CLOPIDOGREL BISULFATE
     Indication: ANTIPLATELET THERAPY

REACTIONS (2)
  - Haematoma [Unknown]
  - Haemorrhage [Unknown]
